FAERS Safety Report 23416903 (Version 7)
Quarter: 2025Q1

REPORT INFORMATION
  Report Type: Spontaneous
  Country: US (occurrence: US)
  Receive Date: 20240118
  Receipt Date: 20250303
  Transmission Date: 20250409
  Serious: No
  Sender: PFIZER
  Company Number: US-PFIZER INC-PV202400007303

PATIENT
  Age: 72 Year
  Sex: Female
  Weight: 113.37 kg

DRUGS (3)
  1. IBRANCE [Suspect]
     Active Substance: PALBOCICLIB
     Indication: Breast cancer female
     Dosage: 100 MG, 1X/DAY
     Dates: start: 2017
  2. IBRANCE [Suspect]
     Active Substance: PALBOCICLIB
  3. FASLODEX [Concomitant]
     Active Substance: FULVESTRANT

REACTIONS (4)
  - Bradykinesia [Not Recovered/Not Resolved]
  - Bone disorder [Unknown]
  - Gait disturbance [Unknown]
  - Liver disorder [Unknown]
